APPROVED DRUG PRODUCT: POLYSPORIN
Active Ingredient: BACITRACIN ZINC; POLYMYXIN B SULFATE
Strength: 10,000 UNITS/GM;2,000,000 UNITS/GM
Dosage Form/Route: AEROSOL;TOPICAL
Application: N050167 | Product #002
Applicant: GLAXOSMITHKLINE
Approved: Mar 1, 1985 | RLD: No | RS: No | Type: DISCN